FAERS Safety Report 4477398-1 (Version None)
Quarter: 2004Q4

REPORT INFORMATION
  Report Type: 
  Country: None (occurrence: None)
  Receive Date: 20041013
  Receipt Date: 20041011
  Transmission Date: 20050328
  Serious: Yes (Hospitalization)
  Sender: FDA-Public Use
  Company Number: FR-2004-025999

PATIENT
  Age: 76 Year
  Sex: Female

DRUGS (3)
  1. SOTALOL HCL [Suspect]
     Dosage: 120 MG, 1X/DAY, ORAL
     Route: 048
     Dates: start: 19990615, end: 20040228
  2. HYPERIUM                (RILMENIDINE) [Suspect]
     Dosage: 1 MG, 1X/DAY, ORAL
     Route: 048
     Dates: start: 19990615, end: 20040228
  3. LASIX [Suspect]
     Dosage: 500 GM, 1X/DAY, ORAL
     Route: 048
     Dates: start: 19990615, end: 20040228

REACTIONS (5)
  - HAEMOPTYSIS [None]
  - HYPOKALAEMIA [None]
  - LUNG DISORDER [None]
  - SYNCOPE [None]
  - TORSADE DE POINTES [None]
